FAERS Safety Report 18190899 (Version 1)
Quarter: 2020Q3

REPORT INFORMATION
  Report Type: Spontaneous
  Country: FR (occurrence: FR)
  Receive Date: 20200825
  Receipt Date: 20200825
  Transmission Date: 20201103
  Serious: Yes (Death, Life-Threatening, Hospitalization)
  Sender: FDA-Public Use
  Company Number: FR-ROCHE-2664772

PATIENT
  Age: 57 Year
  Sex: Male
  Weight: 85 kg

DRUGS (8)
  1. MABTHERA [Suspect]
     Active Substance: RITUXIMAB
     Indication: B-CELL LYMPHOMA
     Route: 041
     Dates: start: 20200804, end: 20200804
  2. DIPRIVAN [Suspect]
     Active Substance: PROPOFOL
     Indication: LIGHT ANAESTHESIA
     Route: 042
     Dates: start: 20200804, end: 20200805
  3. METHOTREXATE. [Suspect]
     Active Substance: METHOTREXATE
     Indication: B-CELL LYMPHOMA
     Route: 042
     Dates: start: 20200804, end: 20200804
  4. SOLU?MEDROL [Suspect]
     Active Substance: METHYLPREDNISOLONE SODIUM SUCCINATE
     Indication: VASOGENIC CEREBRAL OEDEMA
     Dosage: 40 MG/2 ML
     Route: 042
     Dates: start: 20200804, end: 20200806
  5. KEPPRA [Suspect]
     Active Substance: LEVETIRACETAM
     Indication: EPILEPSY
     Dosage: 100 MG/ML,
     Route: 042
     Dates: start: 20200804, end: 20200806
  6. LOVENOX [Concomitant]
     Active Substance: ENOXAPARIN SODIUM
     Dosage: 10 000 UI
     Route: 042
     Dates: start: 20200727, end: 20200806
  7. ETOPOPHOS [Concomitant]
     Active Substance: ETOPOSIDE PHOSPHATE
     Route: 042
     Dates: start: 20200805, end: 20200805
  8. TAZOCILLINE [Suspect]
     Active Substance: PIPERACILLIN SODIUM\TAZOBACTAM SODIUM
     Indication: PNEUMONIA ASPIRATION
     Dosage: 4 G/500 MG
     Route: 042
     Dates: start: 20200804, end: 20200805

REACTIONS (3)
  - Acute kidney injury [Not Recovered/Not Resolved]
  - Condition aggravated [Fatal]
  - Neurological decompensation [Not Recovered/Not Resolved]

NARRATIVE: CASE EVENT DATE: 20200805
